FAERS Safety Report 10022721 (Version 1)
Quarter: 2014Q1

REPORT INFORMATION
  Report Type: Spontaneous
  Country: US (occurrence: US)
  Receive Date: 20140319
  Receipt Date: 20140319
  Transmission Date: 20141002
  Serious: No
  Sender: FDA-Public Use
  Company Number: US-PFIZER INC-2014079013

PATIENT
  Sex: Female

DRUGS (1)
  1. LYRICA [Suspect]
     Dosage: UNK
     Dates: start: 20140309

REACTIONS (4)
  - Drug ineffective [Unknown]
  - Somnolence [Unknown]
  - Euphoric mood [Unknown]
  - Psychomotor hyperactivity [Unknown]
